FAERS Safety Report 9456135 (Version 1)
Quarter: 2013Q3

REPORT INFORMATION
  Report Type: Spontaneous
  Country: FR (occurrence: FR)
  Receive Date: 20130813
  Receipt Date: 20130813
  Transmission Date: 20140515
  Serious: Yes (Hospitalization, Other)
  Sender: FDA-Public Use
  Company Number: FR-TEVA-423611ISR

PATIENT
  Age: 31 Year
  Sex: Female

DRUGS (1)
  1. COPAXONE [Suspect]
     Indication: RELAPSING-REMITTING MULTIPLE SCLEROSIS
     Dates: start: 20130515

REACTIONS (5)
  - Multiple sclerosis relapse [Recovering/Resolving]
  - Paraesthesia [Recovered/Resolved]
  - Muscle spasticity [Recovering/Resolving]
  - Sensory loss [Recovering/Resolving]
  - Muscle spasms [Recovered/Resolved]
